FAERS Safety Report 7550564-4 (Version None)
Quarter: 2011Q2

REPORT INFORMATION
  Report Type: 
  Country: None (occurrence: None)
  Receive Date: 20110616
  Receipt Date: 20110608
  Transmission Date: 20111010
  Serious: Yes (Hospitalization)
  Sender: FDA-Public Use
  Company Number: US-BIOGENIDEC-2011BI017599

PATIENT
  Age: 63 Year
  Sex: Female

DRUGS (5)
  1. AMBIEN CR [Concomitant]
  2. FENTANYL [Concomitant]
  3. METOPROLOL TARTRATE [Concomitant]
  4. TYSABRI [Suspect]
     Indication: MULTIPLE SCLEROSIS
     Route: 042
     Dates: start: 20080616
  5. AMPYRA [Concomitant]
     Indication: GAIT DISTURBANCE
     Dates: start: 20100201

REACTIONS (1)
  - OSTEOARTHRITIS [None]
